FAERS Safety Report 5839836-9 (Version None)
Quarter: 2008Q3

REPORT INFORMATION
  Report Type: 
  Country: None (occurrence: None)
  Receive Date: 20080807
  Receipt Date: 20080731
  Transmission Date: 20090109
  Serious: Yes (Hospitalization)
  Sender: FDA-Public Use
  Company Number: DSA_32217_2008

PATIENT
  Age: 52 Year
  Sex: Female

DRUGS (3)
  1. VASOTEC [Suspect]
     Indication: HYPERTENSION
     Dosage: (40 MG QD)
  2. DYAZIDE [Concomitant]
  3. TOPROL-XL [Concomitant]

REACTIONS (3)
  - ANKLE FRACTURE [None]
  - ANTIPHOSPHOLIPID SYNDROME [None]
  - PULMONARY EMBOLISM [None]
